FAERS Safety Report 6702997-3 (Version None)
Quarter: 2010Q2

REPORT INFORMATION
  Report Type: 
  Country: None (occurrence: None)
  Receive Date: 20100429
  Receipt Date: 20100427
  Transmission Date: 20101027
  Serious: Yes (Death, Hospitalization)
  Sender: FDA-Public Use
  Company Number: US-GILEAD-2010-0028343

PATIENT
  Sex: Male
  Weight: 122.58 kg

DRUGS (16)
  1. LETAIRIS [Suspect]
     Indication: PULMONARY ARTERIAL HYPERTENSION
     Route: 048
  2. REVATIO [Concomitant]
  3. SOTALOL HCL [Concomitant]
  4. ZOCOR [Concomitant]
  5. FUROSEMIDE [Concomitant]
  6. SPIRONOLACTONE [Concomitant]
  7. NEXAVAR [Concomitant]
  8. LANTUS [Concomitant]
  9. NOVOLOG [Concomitant]
  10. ZITHROMAX [Concomitant]
  11. CEFTIN [Concomitant]
  12. KLOR-CON [Concomitant]
  13. OXYCODONE [Concomitant]
  14. ZANTAC [Concomitant]
  15. LACTULOSE SOL [Concomitant]
  16. XIFAXAN [Concomitant]

REACTIONS (5)
  - DISORIENTATION [None]
  - ENDOCARDITIS [None]
  - HYPOTENSION [None]
  - SEPSIS [None]
  - STREPTOCOCCAL INFECTION [None]
